FAERS Safety Report 6379721-X (Version None)
Quarter: 2009Q3

REPORT INFORMATION
  Report Type: 
  Country: None (occurrence: None)
  Receive Date: 20090924
  Receipt Date: 20090924
  Transmission Date: 20100115
  Serious: Yes (Other)
  Sender: FDA-Public Use
  Company Number: None

PATIENT
  Age: 21 Year
  Sex: Female
  Weight: 52.1637 kg

DRUGS (2)
  1. PROVIGIL [Suspect]
     Indication: DEPRESSION
     Dosage: 1 DAILY PO
     Route: 048
     Dates: start: 20090903, end: 20090923
  2. FLUOXOTINE 20MG MFG SANDOZ [Suspect]
     Indication: DEPRESSION
     Dosage: 3 DAILY PO
     Route: 048
     Dates: start: 20090124, end: 20090923

REACTIONS (7)
  - AMNESIA [None]
  - CONVULSION [None]
  - DEPRESSED LEVEL OF CONSCIOUSNESS [None]
  - FALL [None]
  - LOSS OF CONSCIOUSNESS [None]
  - SYNCOPE [None]
  - THERAPEUTIC AGENT TOXICITY [None]
